FAERS Safety Report 9921347 (Version 1)
Quarter: 2014Q1

REPORT INFORMATION
  Report Type: Spontaneous
  Country: FR (occurrence: FR)
  Receive Date: 20140225
  Receipt Date: 20140225
  Transmission Date: 20141002
  Serious: Yes (Hospitalization, Other)
  Sender: FDA-Public Use
  Company Number: FR-ASTRAZENECA-2014SE11717

PATIENT
  Age: 21856 Day
  Sex: Female

DRUGS (12)
  1. INEXIUM [Suspect]
     Route: 048
     Dates: end: 20140110
  2. RIFADINE [Suspect]
     Indication: OSTEITIS
     Route: 048
     Dates: start: 20131210, end: 20140103
  3. FUCIDINE [Suspect]
     Indication: OSTEITIS
     Route: 048
     Dates: start: 20131210, end: 20140107
  4. FORTUM [Suspect]
     Indication: OSTEITIS
     Route: 042
     Dates: start: 20131210, end: 20140110
  5. COZAAR [Suspect]
     Route: 048
     Dates: end: 20140110
  6. KARDEGIC [Suspect]
     Route: 048
     Dates: end: 20140110
  7. CORTANCYL [Concomitant]
  8. EUPRESSYL [Concomitant]
  9. PARACETAMOL [Concomitant]
  10. XANAX [Concomitant]
  11. DIFFU K [Concomitant]
  12. OXYNORM [Concomitant]
     Dosage: IF NEEDED

REACTIONS (8)
  - Renal failure acute [Recovering/Resolving]
  - Anaemia [Unknown]
  - Nephroangiosclerosis [Unknown]
  - Diarrhoea [Unknown]
  - Vomiting [Unknown]
  - Hypogammaglobulinaemia [Unknown]
  - Leukocyturia [Unknown]
  - Therapy cessation [Unknown]
